FAERS Safety Report 6419619-1 (Version None)
Quarter: 2009Q4

REPORT INFORMATION
  Report Type: 
  Country: None (occurrence: None)
  Receive Date: 20091029
  Receipt Date: 20091020
  Transmission Date: 20100525
  Serious: Yes (Other)
  Sender: FDA-Public Use
  Company Number: US-JNJFOC-20091006821

PATIENT
  Sex: Female
  Weight: 72.58 kg

DRUGS (2)
  1. REMICADE [Suspect]
     Indication: CROHN'S DISEASE
     Route: 042
  2. PREDNISONE TAB [Concomitant]
     Indication: CROHN'S DISEASE

REACTIONS (3)
  - ANAPHYLACTIC SHOCK [None]
  - COLECTOMY [None]
  - INFUSION RELATED REACTION [None]
